FAERS Safety Report 16776962 (Version 2)
Quarter: 2019Q3

REPORT INFORMATION
  Report Type: Report from Study
  Country: US (occurrence: US)
  Receive Date: 20190905
  Receipt Date: 20190910
  Transmission Date: 20191005
  Serious: No
  Sender: FDA-Public Use
  Company Number: PHEH2019US036774

PATIENT
  Sex: Female

DRUGS (1)
  1. GILENYA [Suspect]
     Active Substance: FINGOLIMOD HYDROCHLORIDE
     Indication: MULTIPLE SCLEROSIS
     Dosage: 0.5 MG, QD
     Route: 048
     Dates: start: 201807

REACTIONS (9)
  - Dry eye [Unknown]
  - Lacrimation increased [Unknown]
  - Dizziness [Unknown]
  - Cyst [Unknown]
  - Depressed mood [Unknown]
  - Anxiety [Unknown]
  - Depression [Unknown]
  - Ovarian cyst [Unknown]
  - Nerve compression [Unknown]
